FAERS Safety Report 9422606 (Version 2)
Quarter: 2013Q3

REPORT INFORMATION
  Report Type: Spontaneous
  Country: IT (occurrence: IT)
  Receive Date: 20130726
  Receipt Date: 20130802
  Transmission Date: 20140515
  Serious: Yes (Death)
  Sender: FDA-Public Use
  Company Number: IT-ASTRAZENECA-2013SE56700

PATIENT
  Age: 29250 Day
  Sex: Male

DRUGS (9)
  1. MEROPENEM [Suspect]
     Indication: BRAIN ABSCESS
     Route: 042
     Dates: start: 20130605, end: 20130707
  2. METRONIDAZOLE [Suspect]
     Indication: BRAIN ABSCESS
     Route: 042
     Dates: start: 20130605, end: 20130707
  3. DEXAMETHASONE [Concomitant]
  4. PARNAPARIN [Concomitant]
  5. OMEPRAZOLE [Concomitant]
  6. ENALAPRIL [Concomitant]
  7. LEVOTHYROXINE [Concomitant]
  8. DUTASTERIDE [Concomitant]
  9. OTHER DRUGS [Concomitant]

REACTIONS (2)
  - Agranulocytosis [Fatal]
  - Thrombocytopenia [Fatal]
